FAERS Safety Report 21234562 (Version 3)
Quarter: 2022Q3

REPORT INFORMATION
  Report Type: Spontaneous
  Country: US (occurrence: US)
  Receive Date: 20220820
  Receipt Date: 20220927
  Transmission Date: 20221026
  Serious: No
  Sender: FDA-Public Use
  Company Number: US-HETERO-HET2022US02005

PATIENT
  Age: 33 Year
  Sex: Male
  Weight: 79 kg

DRUGS (1)
  1. ATOMOXETINE [Suspect]
     Active Substance: ATOMOXETINE
     Indication: Attention deficit hyperactivity disorder
     Dosage: 1 CAPSULE PER DAY
     Route: 048
     Dates: end: 202208

REACTIONS (4)
  - Dysstasia [Recovered/Resolved]
  - Sitting disability [Recovered/Resolved]
  - Nausea [Recovered/Resolved]
  - Dizziness [Recovered/Resolved]

NARRATIVE: CASE EVENT DATE: 20220724
